FAERS Safety Report 8290854 (Version 3)
Quarter: 2014Q1

REPORT INFORMATION
  Report Type: Spontaneous
  Country: US (occurrence: None)
  Receive Date: 20111122
  Receipt Date: 20130107
  Transmission Date: 20141002
  Serious: Yes (Other)
  Sender: FDA-Public Use
  Company Number: PHEH2011US01490

PATIENT
  Age: 38 Year
  Sex: Female

DRUGS (1)
  1. GILENYA [Suspect]
     Indication: MULTIPLE SCLEROSIS
     Dosage: 0.5 MG, DAILY, ORAL
     Route: 048
     Dates: start: 20110803

REACTIONS (6)
  - Fatigue [None]
  - Blood testosterone increased [None]
  - Blood cholesterol increased [None]
  - Menstruation irregular [None]
  - Liver function test abnormal [None]
  - White blood cell count decreased [None]
